FAERS Safety Report 8163031-4 (Version None)
Quarter: 2012Q1

REPORT INFORMATION
  Report Type: 
  Country: None (occurrence: None)
  Receive Date: 20120224
  Receipt Date: 20120222
  Transmission Date: 20120608
  Serious: Yes (Death, Other)
  Sender: FDA-Public Use
  Company Number: DE-B.I. PHARMACEUTICALS,INC./RIDGEFIELD-2012-DE-00421DE

PATIENT
  Sex: Male
  Weight: 64 kg

DRUGS (7)
  1. PRADAXA [Suspect]
     Indication: ATRIAL FIBRILLATION
     Dosage: 220 MG
     Dates: end: 20120203
  2. TAMSULOSIN HCL [Concomitant]
     Dosage: 1 ANZ
  3. EUBIOL [Concomitant]
     Dosage: 1 ANZ
  4. CIPROFLOXACIN [Concomitant]
     Dosage: 1 ANZ
     Dates: start: 20120201
  5. DIGITOXIN TAB [Concomitant]
     Dosage: 1 ANZ
  6. PANTOPRAZOLE [Concomitant]
     Dosage: 20 MG
  7. METOPROLOL TARTRATE [Concomitant]
     Dosage: 23.75 MG

REACTIONS (9)
  - GASTROINTESTINAL HAEMORRHAGE [None]
  - ACUTE ABDOMEN [None]
  - INTESTINAL ISCHAEMIA [None]
  - CARDIOVASCULAR INSUFFICIENCY [None]
  - SEPTIC SHOCK [None]
  - HAEMATOCHEZIA [None]
  - CLOSTRIDIAL INFECTION [None]
  - HYPOVOLAEMIA [None]
  - DIARRHOEA HAEMORRHAGIC [None]
